FAERS Safety Report 5306414-X (Version None)
Quarter: 2007Q2

REPORT INFORMATION
  Report Type: 
  Country: None (occurrence: None)
  Receive Date: 20070424
  Receipt Date: 20070411
  Transmission Date: 20071010
  Serious: Yes (Hospitalization)
  Sender: FDA-Public Use
  Company Number: GB-GENENTECH-240297

PATIENT
  Sex: Female

DRUGS (3)
  1. BEVACIZUMAB [Suspect]
     Indication: OVARIAN EPITHELIAL CANCER
     Dosage: 350 MG, UNK
     Route: 042
     Dates: start: 20070219
  2. CARBOPLATIN [Suspect]
     Indication: OVARIAN EPITHELIAL CANCER
     Dosage: 590 MG, UNK
     Route: 042
     Dates: start: 20070219
  3. PACLITAXEL [Suspect]
     Indication: OVARIAN EPITHELIAL CANCER
     Dosage: 252 MG, UNK
     Route: 042
     Dates: start: 20070219

REACTIONS (3)
  - NEUTROPENIA [None]
  - PAIN [None]
  - PYREXIA [None]
